FAERS Safety Report 6443411-5 (Version None)
Quarter: 2009Q4

REPORT INFORMATION
  Report Type: 
  Country: None (occurrence: None)
  Receive Date: 20091117
  Receipt Date: 20091105
  Transmission Date: 20100525
  Serious: Yes (Hospitalization)
  Sender: FDA-Public Use
  Company Number: JP-PFIZER INC-2009280772

PATIENT
  Age: 67 Year
  Sex: Male
  Weight: 59 kg

DRUGS (18)
  1. SUNITINIB MALATE [Suspect]
     Indication: HEPATIC NEOPLASM MALIGNANT
     Dosage: 25 MG, 1X/DAY
     Route: 048
     Dates: start: 20090812
  2. ATARAX [Concomitant]
     Indication: PRURITUS
     Dosage: UNK
     Route: 048
  3. ONON [Concomitant]
     Indication: PRURITUS
     Dosage: UNK
     Route: 048
  4. GASTER OD [Concomitant]
     Indication: GASTRITIS
     Route: 048
     Dates: end: 20090908
  5. PARIET [Concomitant]
     Indication: GASTRITIS
     Dosage: UNK
     Route: 048
     Dates: start: 20090909
  6. CLARITIN [Concomitant]
     Indication: PRURITUS
     Dosage: UNK
     Route: 048
  7. DEPAS [Concomitant]
     Indication: INSOMNIA
     Dosage: UNK
     Route: 048
  8. DERMOVATE [Concomitant]
     Indication: PRURITUS
     Dosage: UNK
     Route: 003
  9. MUCOSOLVAN [Concomitant]
     Indication: PROPHYLAXIS
     Dosage: UNK
     Route: 048
  10. MUCODYNE [Concomitant]
     Indication: PROPHYLAXIS
     Dosage: UNK
     Route: 048
  11. LIDOMEX [Concomitant]
     Indication: PRURITUS
     Dosage: UNK
     Route: 003
  12. ADOFEED [Concomitant]
     Indication: SPINAL OSTEOARTHRITIS
     Dosage: UNK
     Route: 048
  13. ALENDRONATE SODIUM [Concomitant]
     Indication: OSTEOPOROSIS
     Dosage: UNK
     Route: 048
  14. POLARAMINE [Concomitant]
     Indication: PRURITUS
     Dosage: UNK
     Route: 048
  15. MUCOSTA [Concomitant]
     Indication: GASTRITIS
     Dosage: UNK
     Route: 048
  16. LOXONIN [Concomitant]
     Indication: SPINAL OSTEOARTHRITIS
     Dosage: UNK
     Route: 048
  17. LENDORMIN [Concomitant]
     Indication: INSOMNIA
     Dosage: UNK
     Route: 048
  18. AMLODIPINE BESILATE [Concomitant]
     Indication: HYPERTENSION
     Dosage: UNK
     Route: 048
     Dates: start: 20090909

REACTIONS (4)
  - ASTHENIA [None]
  - DIZZINESS [None]
  - FATIGUE [None]
  - MALAISE [None]
